FAERS Safety Report 9779091 (Version 1)
Quarter: 2013Q4

REPORT INFORMATION
  Report Type: Spontaneous
  Country: US (occurrence: US)
  Receive Date: 20131223
  Receipt Date: 20131223
  Transmission Date: 20140711
  Serious: Yes (Hospitalization, Disabling, Other)
  Sender: FDA-Public Use
  Company Number: US-ELI_LILLY_AND_COMPANY-US201312004147

PATIENT
  Sex: Male

DRUGS (4)
  1. INSULIN HUMAN [Suspect]
     Indication: DIABETES MELLITUS
     Dosage: 25 U, BID
     Route: 065
     Dates: start: 1993
  2. HUMULIN NPH [Suspect]
     Indication: DIABETES MELLITUS
     Dosage: 55 U, EACH MORNING
     Route: 065
     Dates: start: 1993
  3. HUMULIN NPH [Suspect]
     Dosage: 30 U, EACH EVENING
     Route: 065
     Dates: start: 1993
  4. CARVEDILOL [Concomitant]
     Dosage: UNK

REACTIONS (6)
  - Arterial occlusive disease [Unknown]
  - Cerebrovascular accident [Recovered/Resolved with Sequelae]
  - Blood glucose increased [Recovering/Resolving]
  - Drug dose omission [Unknown]
  - Mobility decreased [Not Recovered/Not Resolved]
  - Dysarthria [Not Recovered/Not Resolved]
